FAERS Safety Report 8120622-4 (Version None)
Quarter: 2012Q1

REPORT INFORMATION
  Report Type: 
  Country: None (occurrence: None)
  Receive Date: 20120207
  Receipt Date: 20120131
  Transmission Date: 20120608
  Serious: Yes (Other)
  Sender: FDA-Public Use
  Company Number: AT-MILLENNIUM PHARMACEUTICALS, INC.-2012-00728

PATIENT

DRUGS (2)
  1. ECULIZUMAB [Suspect]
     Indication: RENAL TRANSPLANT
  2. VELCADE [Suspect]
     Indication: RENAL TRANSPLANT

REACTIONS (2)
  - THROMBOTIC MICROANGIOPATHY [None]
  - GRAFT LOSS [None]
